FAERS Safety Report 9693337 (Version 3)
Quarter: 2013Q4

REPORT INFORMATION
  Report Type: Spontaneous
  Country: US (occurrence: None)
  Receive Date: 20131114
  Receipt Date: 20131230
  Transmission Date: 20140711
  Serious: Yes (Death, Other)
  Sender: FDA-Public Use
  Company Number: ZYD-13-AE-285

PATIENT
  Age: 70 Year
  Sex: Male

DRUGS (7)
  1. WARFARIN [Suspect]
     Indication: CARDIAC VALVE DISEASE
     Route: 048
     Dates: start: 20130713, end: 201311
  2. SYNTHROID [Concomitant]
  3. ATORVASTATIN [Concomitant]
  4. DOCUSATE SODIUM [Concomitant]
  5. FLOMAX [Concomitant]
  6. NIASPAN [Concomitant]
  7. LANSPRAZOLE [Concomitant]

REACTIONS (8)
  - International normalised ratio abnormal [None]
  - Haemarthrosis [None]
  - Lung cancer metastatic [None]
  - Metastases to central nervous system [None]
  - Metastases to bone [None]
  - Metastasis [None]
  - Local swelling [None]
  - Drug ineffective [None]
